FAERS Safety Report 13937082 (Version 1)
Quarter: 2017Q3

REPORT INFORMATION
  Report Type: Spontaneous
  Country: US (occurrence: US)
  Receive Date: 20170905
  Receipt Date: 20170905
  Transmission Date: 20171127
  Serious: No
  Sender: FDA-Public Use
  Company Number: US-BAYER-2017-160157

PATIENT
  Age: 69 Year
  Sex: Female
  Weight: 80 kg

DRUGS (4)
  1. LIPITOR [Concomitant]
     Active Substance: ATORVASTATIN CALCIUM
  2. CLARITIN [Suspect]
     Active Substance: LORATADINE
     Indication: PRURITUS GENERALISED
     Dosage: 1 DF, QD
     Route: 048
     Dates: start: 20170814, end: 20170816
  3. CLARITIN [Suspect]
     Active Substance: LORATADINE
     Indication: PRURITUS GENERALISED
     Dosage: 1 DF, QD
     Route: 048
     Dates: start: 20170820
  4. METHYLPREDNISOLON [Concomitant]
     Active Substance: METHYLPREDNISOLONE
     Dosage: 4 MG, UNK

REACTIONS (5)
  - Off label use [Unknown]
  - Asthenia [Recovered/Resolved]
  - Tinnitus [Not Recovered/Not Resolved]
  - Product use in unapproved indication [Unknown]
  - Asthenia [Recovered/Resolved]

NARRATIVE: CASE EVENT DATE: 20170814
